FAERS Safety Report 5612866-8 (Version None)
Quarter: 2008Q1

REPORT INFORMATION
  Report Type: 
  Country: None (occurrence: None)
  Receive Date: 20080128
  Receipt Date: 20080113
  Transmission Date: 20080703
  Serious: Yes (Hospitalization)
  Sender: FDA-Public Use
  Company Number: 8029316

PATIENT
  Age: 29 Month
  Sex: Female
  Weight: 12 kg

DRUGS (2)
  1. KEPPRA [Suspect]
     Dosage: 1000 MG ONCE PO
     Route: 048
     Dates: start: 20080101, end: 20080101
  2. TRIPLEPTAL [Suspect]
     Dosage: 600 MG ONCE PO
     Route: 048
     Dates: start: 20080101, end: 20080101

REACTIONS (2)
  - ACCIDENTAL DRUG INTAKE BY CHILD [None]
  - SOMNOLENCE [None]
